FAERS Safety Report 8919086 (Version 1)
Quarter: 2012Q4

REPORT INFORMATION
  Report Type: Spontaneous
  Country: DE (occurrence: None)
  Receive Date: 20121114
  Receipt Date: 20121114
  Transmission Date: 20130627
  Serious: Yes (Death)
  Sender: FDA-Public Use
  Company Number: GER/GER/12/0026531

PATIENT
  Age: 68 Year
  Sex: Male

DRUGS (2)
  1. IBUPROFEN [Suspect]
     Route: 048
  2. DIPHENHYDRAMINE [Suspect]
     Route: 048

REACTIONS (5)
  - Toxicity to various agents [None]
  - Pulmonary congestion [None]
  - Brain oedema [None]
  - Heart injury [None]
  - Hypoxia [None]
